FAERS Safety Report 8885707 (Version 2)
Quarter: 2013Q4

REPORT INFORMATION
  Report Type: Spontaneous
  Country: BR (occurrence: BR)
  Receive Date: 20121102
  Receipt Date: 20131115
  Transmission Date: 20140711
  Serious: Yes (Other)
  Sender: FDA-Public Use
  Company Number: BR-AMGEN-BRASP2012069696

PATIENT
  Age: 61 Year
  Sex: Female
  Weight: 78 kg

DRUGS (4)
  1. ENBREL [Suspect]
     Indication: RHEUMATOID ARTHRITIS
     Dosage: 50 MG, ONCE WEEKLY
     Route: 058
     Dates: start: 20111130, end: 201201
  2. DIPIRONE [Concomitant]
     Indication: PAIN
     Dosage: UNK UNK,WHEN THE PAINS ARE VERY STRONG, AS NECESSARY
  3. BETATRINTA [Concomitant]
     Indication: PAIN
     Dosage: UNK UNK,WHEN THE PAINS ARE VERY STRONG, AS NECESSARY
  4. OMEPRAZOLE [Concomitant]
     Indication: GASTRITIS
     Dosage: UNK
     Dates: start: 2009

REACTIONS (3)
  - Rheumatoid arthritis [Unknown]
  - Bone pain [Unknown]
  - Pain [Unknown]
